FAERS Safety Report 5618459-0 (Version None)
Quarter: 2008Q1

REPORT INFORMATION
  Report Type: 
  Country: None (occurrence: None)
  Receive Date: 20080207
  Receipt Date: 20080204
  Transmission Date: 20080703
  Serious: Yes (Hospitalization)
  Sender: FDA-Public Use
  Company Number: A0701674A

PATIENT
  Age: 65 Year
  Sex: Male

DRUGS (14)
  1. AVODART [Suspect]
     Indication: BENIGN PROSTATIC HYPERPLASIA
     Dosage: .5MG PER DAY
     Route: 048
     Dates: start: 20060101, end: 20070701
  2. FLOMAX [Concomitant]
  3. COREG [Concomitant]
  4. POTASSIUM CHLORIDE [Concomitant]
  5. THYROID TAB [Concomitant]
  6. COUMADIN [Concomitant]
  7. LIPITOR [Concomitant]
  8. ASPIRIN [Concomitant]
  9. LASIX [Concomitant]
  10. PROTONIX [Concomitant]
  11. UNKNOWN [Concomitant]
  12. DIGITEK [Concomitant]
  13. COLCHICINE [Concomitant]
  14. LEVOTHYROXINE SODIUM [Concomitant]

REACTIONS (7)
  - AORTIC ANEURYSM [None]
  - BLOOD POTASSIUM DECREASED [None]
  - BREAST ENLARGEMENT [None]
  - BREAST MASS [None]
  - BREAST TENDERNESS [None]
  - HYPOTHYROIDISM [None]
  - LOSS OF LIBIDO [None]
